FAERS Safety Report 7905043-9 (Version None)
Quarter: 2011Q4

REPORT INFORMATION
  Report Type: 
  Country: None (occurrence: None)
  Receive Date: 20111109
  Receipt Date: 20111102
  Transmission Date: 20120403
  Serious: Yes (Death)
  Sender: FDA-Public Use
  Company Number: TW-BAXTER-2011BH032723

PATIENT
  Age: 60 Year

DRUGS (4)
  1. DIANEAL [Suspect]
     Indication: PERITONEAL DIALYSIS
     Route: 033
     Dates: start: 20061101, end: 20111014
  2. DIANEAL [Suspect]
     Route: 033
     Dates: start: 20061101, end: 20111014
  3. EXTRANEAL [Suspect]
     Route: 033
     Dates: start: 20061101, end: 20111014
  4. EXTRANEAL [Suspect]
     Indication: PERITONEAL DIALYSIS
     Route: 033
     Dates: start: 20061101, end: 20111014

REACTIONS (1)
  - DEATH [None]
